FAERS Safety Report 17165621 (Version 2)
Quarter: 2019Q4

REPORT INFORMATION
  Report Type: Spontaneous
  Country: US (occurrence: US)
  Receive Date: 20191217
  Receipt Date: 20191218
  Transmission Date: 20200122
  Serious: No
  Sender: FDA-Public Use
  Company Number: US-ASTRAZENECA-2019SF76600

PATIENT
  Age: 22728 Day
  Sex: Female
  Weight: 177.8 kg

DRUGS (14)
  1. METFORMIN [Concomitant]
     Active Substance: METFORMIN HYDROCHLORIDE
  2. MILK THISTLE [Concomitant]
     Active Substance: DIETARY SUPPLEMENT\HERBALS\MILK THISTLE
  3. BYDUREON BCISE [Suspect]
     Active Substance: EXENATIDE
     Indication: TYPE 2 DIABETES MELLITUS
     Route: 058
     Dates: start: 201807
  4. LEVOTHYROXINE. [Concomitant]
     Active Substance: LEVOTHYROXINE
  5. TOUJEO [Concomitant]
     Active Substance: INSULIN GLARGINE
  6. ASPIRIN. [Concomitant]
     Active Substance: ASPIRIN
  7. HUMALOG [Concomitant]
     Active Substance: INSULIN LISPRO
  8. ATORVASTATIN [Concomitant]
     Active Substance: ATORVASTATIN
  9. METOPROLOL TARTRATE. [Suspect]
     Active Substance: METOPROLOL TARTRATE
     Route: 065
  10. VITAMIN D [Concomitant]
     Active Substance: VITAMIN D NOS
  11. PROBIOTIC [Concomitant]
     Active Substance: PROBIOTICS NOS
  12. LISINOPRIL. [Concomitant]
     Active Substance: LISINOPRIL
  13. LORATADINE. [Concomitant]
     Active Substance: LORATADINE
  14. VITAMIN C [Concomitant]
     Active Substance: ASCORBIC ACID

REACTIONS (4)
  - Product dose omission [Unknown]
  - Injection site haemorrhage [Unknown]
  - Incorrect dose administered by product [Unknown]
  - Device leakage [Unknown]

NARRATIVE: CASE EVENT DATE: 20191202
